FAERS Safety Report 5724346-X (Version None)
Quarter: 2008Q2

REPORT INFORMATION
  Report Type: 
  Country: None (occurrence: None)
  Receive Date: 20080430
  Receipt Date: 20080422
  Transmission Date: 20081010
  Serious: Yes (Hospitalization, Other)
  Sender: FDA-Public Use
  Company Number: US-PFIZER INC-2008024871

PATIENT
  Sex: Female
  Weight: 120 kg

DRUGS (14)
  1. ZYVOX [Suspect]
     Route: 048
     Dates: start: 20061128, end: 20061201
  2. VIOXX [Suspect]
  3. CIPROFLOXACIN [Concomitant]
     Route: 048
  4. TRAMADOL HCL [Concomitant]
  5. OMEPRAZOLE [Concomitant]
  6. ALPRAZOLAM [Concomitant]
  7. PREMARIN [Concomitant]
  8. LASIX [Concomitant]
  9. POTASSIUM CHLORIDE [Concomitant]
  10. ADVAIR DISKUS 100/50 [Concomitant]
  11. XOPENEX [Concomitant]
  12. MONTELUKAST SODIUM [Concomitant]
  13. SPIRIVA [Concomitant]
  14. SPIRONOLACTONE [Concomitant]

REACTIONS (1)
  - CELLULITIS [None]
